FAERS Safety Report 20691914 (Version 2)
Quarter: 2022Q2

REPORT INFORMATION
  Report Type: Other
  Country: US (occurrence: None)
  Receive Date: 20220408
  Receipt Date: 20220422
  Transmission Date: 20220721
  Serious: Yes (Hospitalization)
  Sender: FDA-Public Use
  Company Number: US-ROCHE-3064112

PATIENT
  Sex: Female

DRUGS (1)
  1. CELLCEPT [Suspect]
     Active Substance: MYCOPHENOLATE MOFETIL
     Indication: Product used for unknown indication
     Route: 065
     Dates: start: 202202, end: 20220330

REACTIONS (8)
  - Blood sodium decreased [Unknown]
  - Pain [Unknown]
  - Dizziness [Unknown]
  - Blister [Unknown]
  - Gastrooesophageal reflux disease [Unknown]
  - Abdominal pain upper [Recovered/Resolved]
  - Oropharyngeal blistering [Recovered/Resolved]
  - Product dose omission issue [Unknown]
